FAERS Safety Report 9885719 (Version 1)
Quarter: 2013Q4

REPORT INFORMATION
  Report Type: Spontaneous
  Country: US (occurrence: None)
  Receive Date: 20131127
  Receipt Date: 20131127
  Transmission Date: 20140711
  Serious: Yes (Other)
  Sender: FDA-Public Use
  Company Number: 224127LEO

PATIENT
  Age: 47 Year
  Sex: Female

DRUGS (1)
  1. PICATO GEL [Suspect]
     Indication: ACTINIC KERATOSIS
     Route: 061
     Dates: start: 20130911

REACTIONS (9)
  - Scleritis [None]
  - Oropharyngeal pain [None]
  - Application site inflammation [None]
  - Eye pain [None]
  - Ocular hyperaemia [None]
  - Eyelid ptosis [None]
  - Application site scab [None]
  - Application site infection [None]
  - Accidental exposure to product [None]
